FAERS Safety Report 4404955-0 (Version None)
Quarter: 2004Q3

REPORT INFORMATION
  Report Type: 
  Country: None (occurrence: None)
  Receive Date: 20040722
  Receipt Date: 20040720
  Transmission Date: 20050211
  Serious: Yes (Other)
  Sender: FDA-Public Use
  Company Number: GB-MERCK-0407GBR00202

PATIENT
  Age: 46 Year
  Sex: Female

DRUGS (4)
  1. CITALOPRAM [Concomitant]
     Indication: DEPRESSION
     Route: 048
  2. PANTOPRAZOLE [Concomitant]
     Route: 048
     Dates: start: 20040406
  3. PREDNISOLONE ACETATE [Concomitant]
     Route: 047
     Dates: start: 20040514
  4. VIOXX [Suspect]
     Indication: POLYARTHRITIS
     Route: 048
     Dates: start: 20040528, end: 20040702

REACTIONS (2)
  - LEUKOPENIA [None]
  - NEUTROPENIA [None]
